FAERS Safety Report 8540684-X (Version None)
Quarter: 2012Q3

REPORT INFORMATION
  Report Type: 
  Country: None (occurrence: None)
  Receive Date: 20120726
  Receipt Date: 20120712
  Transmission Date: 20120928
  Serious: No
  Sender: FDA-Public Use
  Company Number: US-ASTRAZENECA-2012SE48913

PATIENT
  Age: 68 Year
  Sex: Female

DRUGS (6)
  1. PRILOSEC [Suspect]
     Route: 048
  2. THEOPHYLLINE [Concomitant]
  3. DOXYCYCLINE HCL [Concomitant]
  4. PREDNISONE [Concomitant]
  5. ALBUTEROL [Concomitant]
  6. WARFARIN SODIUM [Concomitant]

REACTIONS (7)
  - DYSPEPSIA [None]
  - COUGH [None]
  - NASOPHARYNGITIS [None]
  - HYPOTHYROIDISM [None]
  - CHRONIC OBSTRUCTIVE PULMONARY DISEASE [None]
  - PULMONARY CONGESTION [None]
  - BRONCHITIS [None]
